FAERS Safety Report 8840951 (Version 1)
Quarter: 2012Q4

REPORT INFORMATION
  Report Type: 
  Country: US (occurrence: US)
  Receive Date: 20121015
  Receipt Date: 20121015
  Transmission Date: 20130627
  Serious: No
  Sender: FDA-Public Use
  Company Number: US-PFIZER INC-2012251119

PATIENT
  Age: 24 Year
  Sex: Female
  Weight: 63.49 kg

DRUGS (2)
  1. DEPO-PROVERA [Suspect]
     Indication: CONTRACEPTION
     Dosage: UNK, single
     Dates: start: 20120824
  2. ST. JOHN^S WORT [Interacting]
     Indication: DEPRESSION
     Dosage: 900 mg, UNK
     Dates: start: 201210

REACTIONS (3)
  - Drug interaction [Unknown]
  - Metrorrhagia [Recovered/Resolved]
  - Depression [Unknown]
